FAERS Safety Report 16982602 (Version 1)
Quarter: 2019Q4

REPORT INFORMATION
  Report Type: Report from Study
  Country: SG (occurrence: SG)
  Receive Date: 20191101
  Receipt Date: 20191101
  Transmission Date: 20200122
  Serious: Yes (Hospitalization)
  Sender: FDA-Public Use
  Company Number: SG-ROCHE-2448403

PATIENT
  Sex: Female

DRUGS (2)
  1. AVASTIN [Suspect]
     Active Substance: BEVACIZUMAB
     Indication: EGFR GENE OVEREXPRESSION
     Route: 042
     Dates: start: 20190806
  2. TECENTRIQ [Suspect]
     Active Substance: ATEZOLIZUMAB
     Indication: EGFR GENE OVEREXPRESSION
     Route: 041
     Dates: start: 20190806

REACTIONS (2)
  - Abdominal discomfort [Unknown]
  - Blood count abnormal [Unknown]

NARRATIVE: CASE EVENT DATE: 20191009
